FAERS Safety Report 6762924-X (Version None)
Quarter: 2010Q2

REPORT INFORMATION
  Report Type: 
  Country: None (occurrence: None)
  Receive Date: 20100608
  Receipt Date: 20100608
  Transmission Date: 20101027
  Serious: Yes (Hospitalization)
  Sender: FDA-Public Use
  Company Number: None

PATIENT
  Age: 28 Year
  Sex: Female
  Weight: 124.7392 kg

DRUGS (2)
  1. DEPO-PROVERA [Suspect]
     Indication: CONTRACEPTION
     Dosage: 150 MG 1 IM Q 12 WK
     Dates: start: 20091215
  2. DEPO-PROVERA [Suspect]
     Indication: MENSTRUAL DISORDER
     Dosage: 150 MG 1 IM Q 12 WK
     Dates: start: 20091215

REACTIONS (1)
  - PULMONARY EMBOLISM [None]
